FAERS Safety Report 9103609 (Version 2)
Quarter: 2013Q1

REPORT INFORMATION
  Report Type: Spontaneous
  Country: JP (occurrence: JP)
  Receive Date: 20130219
  Receipt Date: 20130320
  Transmission Date: 20140127
  Serious: Yes (Other)
  Sender: FDA-Public Use
  Company Number: JP-GLAXOSMITHKLINE-B0868043A

PATIENT
  Sex: Female

DRUGS (4)
  1. RELENZA [Suspect]
     Indication: INFLUENZA
     Dosage: 2IUAX TWICE PER DAY
     Route: 055
     Dates: start: 20130207, end: 20130211
  2. SAWATENE [Concomitant]
     Dosage: 250MG THREE TIMES PER DAY
     Route: 048
     Dates: start: 20130207, end: 20130212
  3. KLARICID [Concomitant]
     Dosage: 100MG THREE TIMES PER DAY
     Route: 048
     Dates: start: 20130207, end: 20130212
  4. COCARL [Concomitant]
     Route: 048

REACTIONS (1)
  - Hypothermia [Recovered/Resolved]
